FAERS Safety Report 14145920 (Version 8)
Quarter: 2018Q4

REPORT INFORMATION
  Report Type: Report from Study
  Country: US (occurrence: US)
  Receive Date: 20171031
  Receipt Date: 20181029
  Transmission Date: 20190204
  Serious: Yes (Other)
  Sender: FDA-Public Use
  Company Number: US-JNJFOC-20160807257

PATIENT
  Age: 81 Year
  Sex: Male

DRUGS (21)
  1. QUINAPRIL. [Concomitant]
     Active Substance: QUINAPRIL
     Indication: HYPERTENSION
     Dosage: UNK, QD
     Route: 048
  2. CENTRUM SILVER [Concomitant]
     Active Substance: MINERALS\VITAMINS
     Indication: SUPPLEMENTATION THERAPY
     Dosage: UNK
     Route: 048
  3. PREDNISONE. [Concomitant]
     Active Substance: PREDNISONE
     Dosage: UNK
     Route: 047
     Dates: end: 20171021
  4. VITAMIN D3 [Concomitant]
     Active Substance: CHOLECALCIFEROL
  5. IMBRUVICA [Suspect]
     Active Substance: IBRUTINIB
     Indication: LYMPHOMA
     Dosage: 420 MG, QD
     Route: 048
     Dates: start: 20140301
  6. METOPROLOL. [Concomitant]
     Active Substance: METOPROLOL
     Indication: HYPERTENSION
     Dosage: UNK, QD
     Route: 048
  7. LOPRESSOR [Concomitant]
     Active Substance: METOPROLOL TARTRATE
     Indication: HYPERTENSION
     Dosage: 50 MG, BID
     Route: 048
  8. ELIQUIS [Concomitant]
     Active Substance: APIXABAN
     Indication: CARDIAC PACEMAKER INSERTION
     Dosage: 5 MG, BID
     Route: 048
  9. DONEPEZIL. [Concomitant]
     Active Substance: DONEPEZIL
     Indication: AMNESIA
     Dosage: 5 MG, QD
     Route: 048
  10. PRAVASTATIN. [Concomitant]
     Active Substance: PRAVASTATIN
     Indication: BLOOD CHOLESTEROL INCREASED
     Dosage: 20 MG, QD
     Route: 048
  11. ZETIA [Concomitant]
     Active Substance: EZETIMIBE
     Indication: BLOOD CHOLESTEROL INCREASED
     Dosage: UNK
     Route: 048
  12. IMBRUVICA [Suspect]
     Active Substance: IBRUTINIB
     Indication: CHRONIC LYMPHOCYTIC LEUKAEMIA
     Dosage: 420 MG, QD
     Route: 048
     Dates: start: 20140301
  13. OMEPRAZOLE. [Concomitant]
     Active Substance: OMEPRAZOLE
     Indication: OESOPHAGEAL OEDEMA
     Dosage: 20 MG, QD
     Route: 048
  14. VITAMIN D [Concomitant]
     Active Substance: CHOLECALCIFEROL
     Indication: SUPPLEMENTATION THERAPY
     Dosage: 1000 IU, UNK
     Route: 048
  15. ILEVRO [Concomitant]
     Active Substance: NEPAFENAC
     Dosage: TO TAKE 42 DAYS
     Route: 047
  16. AMLODIPINE [Concomitant]
     Active Substance: AMLODIPINE BESYLATE
     Indication: HYPERTENSION
     Dosage: 5 MG, QD
     Route: 048
  17. CLONIDINE. [Concomitant]
     Active Substance: CLONIDINE
     Indication: HYPERTENSION
     Dosage: 0.1 MG, QD
     Route: 048
  18. IMBRUVICA [Suspect]
     Active Substance: IBRUTINIB
     Indication: CHRONIC LYMPHOCYTIC LEUKAEMIA
     Dosage: 420 MG, QD
     Route: 048
     Dates: start: 201402
  19. IMBRUVICA [Suspect]
     Active Substance: IBRUTINIB
     Indication: LYMPHOMA
     Dosage: 420 MG, QD
     Route: 048
     Dates: start: 201402
  20. ELIQUIS [Concomitant]
     Active Substance: APIXABAN
     Indication: ATRIAL FIBRILLATION
     Dosage: 5 MG, BID
     Route: 048
  21. ALLOPURINOL. [Concomitant]
     Active Substance: ALLOPURINOL
     Indication: GOUT
     Dosage: 300 MG, QD
     Route: 048

REACTIONS (39)
  - Abnormal dreams [Unknown]
  - Testicular swelling [Recovered/Resolved]
  - Diarrhoea [Recovering/Resolving]
  - Neck pain [Not Recovered/Not Resolved]
  - Feeling cold [Unknown]
  - Bradyarrhythmia [Recovered/Resolved]
  - Blood pressure decreased [Recovered/Resolved]
  - Somnolence [Not Recovered/Not Resolved]
  - Night sweats [Unknown]
  - Product dose omission [Unknown]
  - White blood cell count increased [Unknown]
  - Hyperhidrosis [Recovering/Resolving]
  - Dysphagia [Not Recovered/Not Resolved]
  - Pollakiuria [Not Recovered/Not Resolved]
  - Anaemia [Not Recovered/Not Resolved]
  - Contrast media reaction [Unknown]
  - Accidental overdose [Recovered/Resolved]
  - Arthritis [Unknown]
  - Wound infection [Not Recovered/Not Resolved]
  - Extra dose administered [Recovered/Resolved]
  - Skin laceration [Not Recovered/Not Resolved]
  - Musculoskeletal stiffness [Unknown]
  - Glycosylated haemoglobin increased [Recovering/Resolving]
  - Oral infection [Recovering/Resolving]
  - Stomatitis [Recovered/Resolved]
  - Drug ineffective [Unknown]
  - Dry age-related macular degeneration [Unknown]
  - Blood bilirubin increased [Not Recovered/Not Resolved]
  - Muscular weakness [Recovering/Resolving]
  - Abdominal distension [Unknown]
  - Pain in extremity [Unknown]
  - Malaise [Unknown]
  - Cataract [Recovering/Resolving]
  - Haemorrhagic diathesis [Not Recovered/Not Resolved]
  - Tongue biting [Not Recovered/Not Resolved]
  - Weight decreased [Recovering/Resolving]
  - Fatigue [Recovering/Resolving]
  - Asthenia [Recovering/Resolving]
  - Wound haemorrhage [Not Recovered/Not Resolved]

NARRATIVE: CASE EVENT DATE: 201403
